FAERS Safety Report 10059901 (Version 2)
Quarter: 2014Q2

REPORT INFORMATION
  Report Type: Spontaneous
  Country: US (occurrence: US)
  Receive Date: 20140404
  Receipt Date: 20140610
  Transmission Date: 20141212
  Serious: Yes (Hospitalization)
  Sender: FDA-Public Use
  Company Number: US-GLAXOSMITHKLINE-A1067930A

PATIENT
  Age: 75 Year
  Sex: Female

DRUGS (1)
  1. FLONASE [Suspect]
     Indication: PRODUCT USED FOR UNKNOWN INDICATION
     Dosage: 50MCG UNKNOWN
     Route: 065
     Dates: start: 20071204

REACTIONS (1)
  - Investigation [Unknown]
